FAERS Safety Report 8265630-8 (Version None)
Quarter: 2012Q2

REPORT INFORMATION
  Report Type: 
  Country: None (occurrence: None)
  Receive Date: 20120406
  Receipt Date: 20120323
  Transmission Date: 20120825
  Serious: Yes (Other)
  Sender: FDA-Public Use
  Company Number: CHPA2012US005727

PATIENT
  Age: 65 Year
  Sex: Female

DRUGS (5)
  1. CALCIUM CARBONATE [Concomitant]
  2. MULTI-VITAMINS [Concomitant]
  3. EXCEDRIN EXTRA STRENGTH TABLETS [Suspect]
     Indication: TENSION HEADACHE
     Dosage: 1 DF, QD
  4. LEVOBUNOLOL HYDROCHLORIDE [Concomitant]
     Indication: GLAUCOMA
  5. EXCEDRIN EXTRA STRENGTH TABLETS [Suspect]
     Dosage: 2 DF, QD

REACTIONS (5)
  - BLOOD URINE PRESENT [None]
  - RASH [None]
  - BLOOD CHOLESTEROL INCREASED [None]
  - UNDERDOSE [None]
  - INFECTION [None]
